FAERS Safety Report 24279049 (Version 1)
Quarter: 2024Q3

REPORT INFORMATION
  Report Type: Spontaneous
  Country: US (occurrence: None)
  Receive Date: 20240901
  Receipt Date: 20240901
  Transmission Date: 20241017
  Serious: Yes (Other)
  Sender: Public
  Company Number: None

PATIENT
  Age: 22 Year
  Sex: Female

DRUGS (4)
  1. QBREXZA [Suspect]
     Active Substance: GLYCOPYRRONIUM TOSYLATE
     Route: 061
  2. UNSPECIFIED INGREDIENT [Concomitant]
     Active Substance: UNSPECIFIED INGREDIENT
  3. IRON [Concomitant]
     Active Substance: IRON
  4. ADRENAL COMPLEX [Concomitant]

REACTIONS (8)
  - Erythema [None]
  - Dry skin [None]
  - Dry mouth [None]
  - Dry throat [None]
  - Nasal dryness [None]
  - Choking [None]
  - Salivary hyposecretion [None]
  - Pollakiuria [None]

NARRATIVE: CASE EVENT DATE: 20240901
